FAERS Safety Report 7482895-0 (Version None)
Quarter: 2011Q2

REPORT INFORMATION
  Report Type: 
  Country: None (occurrence: None)
  Receive Date: 20110516
  Receipt Date: 20101221
  Transmission Date: 20111010
  Serious: Yes (Hospitalization)
  Sender: FDA-Public Use
  Company Number: PHHY2010DE73456

PATIENT
  Sex: Female

DRUGS (6)
  1. PANTOPRAZOLE [Concomitant]
     Dosage: 2 DF, ONE IN THE MORNING AND ONE IN THE EVENING
  2. SIMVASTATIN [Concomitant]
     Dosage: 1 DF, IN THE EVENING
  3. CAPTOPRIL [Concomitant]
     Dosage: 0.5 DF, IN THE MORNING
  4. EXTAVIA [Suspect]
     Indication: MULTIPLE SCLEROSIS
     Dosage: 250 UG, QOD
     Route: 058
     Dates: start: 20100701
  5. BISOPROLOL FUMARATE AND HYDROCHLOROTHIAZIDE [Concomitant]
  6. IRON PREPARATIONS [Concomitant]

REACTIONS (4)
  - GASTRIC HAEMORRHAGE [None]
  - ANAEMIA [None]
  - GASTRIC ULCER [None]
  - INFLUENZA LIKE ILLNESS [None]
